FAERS Safety Report 21668194 (Version 2)
Quarter: 2022Q4

REPORT INFORMATION
  Report Type: Spontaneous
  Country: FR (occurrence: FR)
  Receive Date: 20221201
  Receipt Date: 20221216
  Transmission Date: 20230112
  Serious: Yes (Hospitalization)
  Sender: FDA-Public Use
  Company Number: None

PATIENT
  Age: 45 Year
  Sex: Female

DRUGS (10)
  1. TRISENOX [Suspect]
     Active Substance: ARSENIC TRIOXIDE
     Indication: Acute myeloid leukaemia
     Dosage: DURATION : 35 DAYS
     Dates: start: 20201207, end: 20210111
  2. FUROSEMIDE [Suspect]
     Active Substance: FUROSEMIDE
     Indication: Product used for unknown indication
     Dosage: UNIT DOSE : 40 MG , FREQUENCY TIME : 1 DAY ,  DURATION : 2 DAYS
     Dates: start: 20210109, end: 20210111
  3. CASPOFUNGIN ACETATE [Suspect]
     Active Substance: CASPOFUNGIN ACETATE
     Indication: Product used for unknown indication
     Dosage: CASPOFUNGIN ACETATE ((MUSHROOM/GLAREA LOZOYENSIS)), UNIT DOSE : 70 MG , FREQUENCY TIME : 1 DAY , DUR
     Dates: start: 20201206, end: 20210108
  4. VALACYCLOVIR HYDROCHLORIDE [Suspect]
     Active Substance: VALACYCLOVIR HYDROCHLORIDE
     Indication: Product used for unknown indication
     Dosage: 3 GRAM DAILY; 1 G 3 TIMES A DAY, DURATION : 3 DAYS
     Dates: start: 20210111, end: 20210114
  5. ACYCLOVIR [Suspect]
     Active Substance: ACYCLOVIR
     Indication: Product used for unknown indication
     Dosage: 1500 MILLIGRAM DAILY; 500MG 3 TIMES A DAY, DURATION : 2 DAYS
     Dates: start: 20210108, end: 20210110
  6. PREDNISONE [Suspect]
     Active Substance: PREDNISONE
     Indication: Product used for unknown indication
     Dosage: UNIT DOSE :  55 MG, FREQUENCY TIME : 1 DAY , DURATION : 16 DAYS
     Dates: start: 20201212, end: 20201228
  7. VESANOID [Suspect]
     Active Substance: TRETINOIN
     Indication: Acute myeloid leukaemia
     Dosage: 90 MILLIGRAM DAILY; 40 MG MORNING AND 50 MG EVENING,
     Route: 065
     Dates: start: 20201207, end: 20210106
  8. PIPERACILLIN SODIUM\TAZOBACTAM SODIUM [Suspect]
     Active Substance: PIPERACILLIN SODIUM\TAZOBACTAM SODIUM
     Indication: Antibiotic therapy
     Dosage: 16 GRAM DAILY; 4G 4 TIMES A DAY, DURATION : 33 DAYS
     Route: 065
     Dates: start: 20201206, end: 20210108
  9. LOXEN [Concomitant]
     Indication: Product used for unknown indication
     Dosage: 100 MILLIGRAM DAILY; 50MG TWICE A DAY
  10. LOVENOX [Concomitant]
     Active Substance: ENOXAPARIN SODIUM
     Indication: Product used for unknown indication
     Dosage: 12000 UNITS 2 TIMES A DAY

REACTIONS (1)
  - Drug reaction with eosinophilia and systemic symptoms [Recovered/Resolved]

NARRATIVE: CASE EVENT DATE: 20210115
